FAERS Safety Report 5958350-3 (Version None)
Quarter: 2008Q4

REPORT INFORMATION
  Report Type: 
  Country: None (occurrence: None)
  Receive Date: 20081117
  Receipt Date: 20081105
  Transmission Date: 20090506
  Serious: Yes (Other)
  Sender: FDA-Public Use
  Company Number: CIP08002327

PATIENT
  Age: 70 Year
  Sex: Female

DRUGS (14)
  1. ACTONEL [Suspect]
     Dosage: 35 MG ONCE WEEKLY, ORAL
     Route: 048
     Dates: start: 20050101
  2. QUINAPRIL HCL [Concomitant]
  3. PROVERA /00115201/ (MEDROXYPROGESTERONE) [Concomitant]
  4. SINGULAIR /01362601/ (MONTELUKAST) [Concomitant]
  5. POTASSIUM (POTASSIUM) [Concomitant]
  6. PROTONIX /01263201/ (PANTOPRAZOLE) [Concomitant]
  7. ELMIRON [Concomitant]
  8. ERGOCALCIFEROL [Concomitant]
  9. LASIX [Concomitant]
  10. GLUCOSAMINE + CHONDROITIN (CHONDROITIN SULFATE, GLUCOSAMINE) [Concomitant]
  11. MULTIVITAMIN /00831701/ (VITAMINS NOS) [Concomitant]
  12. NASACORT [Concomitant]
  13. CALCIUM (CALCIUM) [Concomitant]
  14. MAGNESIUM (MAGNESIUM) [Concomitant]

REACTIONS (1)
  - ATRIAL FIBRILLATION [None]
